FAERS Safety Report 17375945 (Version 1)
Quarter: 2020Q1

REPORT INFORMATION
  Report Type: Report from Study
  Country: DE (occurrence: DE)
  Receive Date: 20200206
  Receipt Date: 20200206
  Transmission Date: 20200409
  Serious: Yes (Life-Threatening, Hospitalization)
  Sender: FDA-Public Use
  Company Number: DE-TEVA-2020-DE-1181397

PATIENT
  Age: 67 Year
  Sex: Female
  Weight: 48 kg

DRUGS (21)
  1. FLUOROURACIL. [Suspect]
     Active Substance: FLUOROURACIL
     Dosage: 2289 MILLIGRAM, UNK
     Route: 042
     Dates: start: 20180620
  2. FOLINIC ACID [Suspect]
     Active Substance: LEUCOVORIN
     Dosage: 369 MILLIGRAM, UNK
     Route: 065
     Dates: start: 20180815
  3. VECTIBIX [Suspect]
     Active Substance: PANITUMUMAB
     Dosage: 288 MILLIGRAM, UNK
     Route: 042
     Dates: start: 20180620
  4. DEXA (DEXAMETHASONE SODIUM PHOSPHATE) [Concomitant]
     Active Substance: DEXAMETHASONE SODIUM PHOSPHATE
     Indication: NAUSEA
     Dosage: 8 MILLIGRAM, PC
     Route: 042
     Dates: start: 20180620
  5. ONDANSETRON BETA [Concomitant]
     Indication: NAUSEA
     Dosage: 8 MILLIGRAM, PC
     Route: 042
     Dates: start: 20180620
  6. ONDANSETRON B. BRAUN [Concomitant]
     Indication: NAUSEA
     Dosage: 8 MILLIGRAM, AS NECESSARY
     Route: 048
     Dates: start: 20180620
  7. FOLINIC ACID [Suspect]
     Active Substance: LEUCOVORIN
     Indication: COLORECTAL CANCER METASTATIC
     Dosage: 381 MILLIGRAM, UNK
     Route: 065
     Dates: start: 20180620
  8. IRINOTECAN [Suspect]
     Active Substance: IRINOTECAN
     Indication: COLORECTAL CANCER METASTATIC
     Dosage: 171 MILLIGRAM, UNK
     Route: 065
     Dates: start: 20180620
  9. FLUOROURACIL. [Suspect]
     Active Substance: FLUOROURACIL
     Dosage: 381 MILLIGRAM, UNK
     Route: 040
     Dates: start: 20180620
  10. ATROPINUM SULFURICUM [Concomitant]
     Indication: MUSCLE SPASMS
     Dosage: 0.25 MILLIGRAM, PC
     Route: 058
     Dates: start: 20180620
  11. CALCIUMACETAT-NEFRO [Concomitant]
     Indication: NEPHROPATHY
     Dosage: 2000 MILLIGRAM DAILY; 500 MG, QID
     Route: 048
     Dates: start: 20000101
  12. BICANORM [Concomitant]
     Active Substance: SODIUM BICARBONATE
     Indication: NEPHROPATHY
     Dosage: 5 MILLIGRAM DAILY; 5 MILLIGRAM, QD
     Route: 048
     Dates: start: 20000101
  13. FLUOROURACIL. [Suspect]
     Active Substance: FLUOROURACIL
     Indication: COLORECTAL CANCER METASTATIC
     Dosage: 2217 MILLIGRAM, UNK
     Route: 042
     Dates: start: 20180815
  14. IRINOTECAN [Suspect]
     Active Substance: IRINOTECAN
     Dosage: 166 MILLIGRAM, UNK
     Route: 065
     Dates: start: 20180815
  15. FLUOROURACIL. [Suspect]
     Active Substance: FLUOROURACIL
     Dosage: 369 MILLIGRAM, UNK
     Route: 040
     Dates: start: 20180815
  16. VECTIBIX [Suspect]
     Active Substance: PANITUMUMAB
     Dosage: 270 MILLIGRAM, UNK
     Route: 042
     Dates: start: 20180815
  17. EMEND [Concomitant]
     Active Substance: APREPITANT
     Indication: NAUSEA
     Dosage: 125 MILLIGRAM, PC
     Route: 048
     Dates: start: 20180704
  18. VECTIBIX [Suspect]
     Active Substance: PANITUMUMAB
     Indication: COLORECTAL CANCER METASTATIC
     Dosage: 288 MILLIGRAM, UNK
     Route: 042
     Dates: start: 20180919
  19. DOXYCYCLIN-RATIOPHARM [Concomitant]
     Indication: RASH
     Dosage: 50 MILLIGRAM DAILY; 50 MILLIGRAM, QD
     Route: 048
     Dates: start: 20180620
  20. DOXYDERMA [Concomitant]
     Indication: RASH
     Dosage: 2.5 MILLIGRAM, AS NECESSARY
     Route: 061
     Dates: start: 20180620
  21. LOPERAMIDE RATIOPHARM [Concomitant]
     Active Substance: LOPERAMIDE HYDROCHLORIDE
     Indication: DIARRHOEA
     Dosage: 10 MILLIGRAM, AS NECESSARY
     Route: 048
     Dates: start: 20180620

REACTIONS (1)
  - Mental impairment [Not Recovered/Not Resolved]

NARRATIVE: CASE EVENT DATE: 20180924
